FAERS Safety Report 11456521 (Version 1)
Quarter: 2015Q3

REPORT INFORMATION
  Report Type: Spontaneous
  Country: US (occurrence: US)
  Receive Date: 20150903
  Receipt Date: 20150903
  Transmission Date: 20151125
  Serious: Yes (Other)
  Sender: FDA-Public Use
  Company Number: US-ABBVIE-15P-163-1455490-00

PATIENT
  Sex: Female

DRUGS (1)
  1. SYNTHROID [Suspect]
     Active Substance: LEVOTHYROXINE SODIUM
     Indication: HYPOTHYROIDISM
     Dosage: HIGH DOSE
     Route: 065
     Dates: start: 1985

REACTIONS (9)
  - Surgery [Unknown]
  - Weight decreased [Unknown]
  - Hypothyroidism [Not Recovered/Not Resolved]
  - Depression [Unknown]
  - Irritable bowel syndrome [Not Recovered/Not Resolved]
  - Obesity [Not Recovered/Not Resolved]
  - Uterine dilation and curettage [Unknown]
  - Weight increased [Unknown]
  - Polycystic ovaries [Not Recovered/Not Resolved]
